FAERS Safety Report 8139147-5 (Version None)
Quarter: 2012Q1

REPORT INFORMATION
  Report Type: 
  Country: None (occurrence: None)
  Receive Date: 20120215
  Receipt Date: 20120208
  Transmission Date: 20120608
  Serious: Yes (Hospitalization)
  Sender: FDA-Public Use
  Company Number: US-BAYER-2011-075749

PATIENT
  Age: 19 Year
  Sex: Female
  Weight: 59.864 kg

DRUGS (5)
  1. VICODIN [Concomitant]
     Dosage: 5 MG, PRN
     Route: 048
     Dates: start: 20090911
  2. PHENERGAN [Concomitant]
     Dosage: 25 MG, UNK
     Route: 048
     Dates: start: 20090911
  3. PRILOSEC [Concomitant]
     Dosage: 20 MG, QD
     Route: 048
     Dates: start: 20090911
  4. YAZ [Suspect]
     Indication: ACNE
     Dosage: UNK
     Dates: start: 20081001, end: 20090901
  5. YAZ [Suspect]
     Indication: SKIN DISORDER

REACTIONS (7)
  - PAIN [None]
  - INJURY [None]
  - BILIARY DYSKINESIA [None]
  - CHOLECYSTITIS CHRONIC [None]
  - DEPRESSION [None]
  - CHOLECYSTECTOMY [None]
  - ANXIETY [None]
